FAERS Safety Report 5758152-7 (Version None)
Quarter: 2008Q2

REPORT INFORMATION
  Report Type: 
  Country: None (occurrence: None)
  Receive Date: 20080602
  Receipt Date: 20080602
  Transmission Date: 20081010
  Serious: Yes (Hospitalization)
  Sender: FDA-Public Use
  Company Number: None

PATIENT
  Sex: Female
  Weight: 64.5 kg

DRUGS (3)
  1. FLUOROURACIL [Suspect]
     Dosage: 4900 MG
     Dates: start: 20080521, end: 20080521
  2. LEUCOVORIN CALCIUM [Suspect]
     Dosage: 700 MG
     Dates: end: 20080519
  3. ELOXATIN [Suspect]
     Dosage: 148.75 MG
     Dates: end: 20080519

REACTIONS (4)
  - CHEST PAIN [None]
  - DEHYDRATION [None]
  - FATIGUE [None]
  - NAUSEA [None]
